FAERS Safety Report 7947198 (Version 2)
Quarter: 2013Q4

REPORT INFORMATION
  Report Type: Spontaneous
  Country: US (occurrence: US)
  Receive Date: 20110517
  Receipt Date: 20131114
  Transmission Date: 20140711
  Serious: Yes (Hospitalization, Other)
  Sender: FDA-Public Use
  Company Number: US-BAYER-201034741NA

PATIENT
  Age: 32 Year
  Sex: Female
  Weight: 108.84 kg

DRUGS (4)
  1. YAZ [Suspect]
     Dosage: UNK
     Dates: start: 2003
  2. YASMIN [Suspect]
     Dosage: UNK
     Dates: start: 2003
  3. ALLEGRA [Concomitant]
  4. OVCON-35 [Concomitant]
     Indication: CONTRACEPTION

REACTIONS (4)
  - Deep vein thrombosis [None]
  - Gallbladder disorder [None]
  - Biliary dyskinesia [None]
  - Cholecystitis chronic [None]
